FAERS Safety Report 6728650-8 (Version None)
Quarter: 2010Q2

REPORT INFORMATION
  Report Type: 
  Country: None (occurrence: None)
  Receive Date: 20100517
  Receipt Date: 20100506
  Transmission Date: 20101027
  Serious: Yes (Other)
  Sender: FDA-Public Use
  Company Number: JP-PFIZER INC-2010038297

PATIENT
  Age: 57 Year
  Sex: Female
  Weight: 42 kg

DRUGS (7)
  1. SUNITINIB MALATE [Suspect]
     Indication: METASTATIC RENAL CELL CARCINOMA
     Dosage: 50 MG, 1X/DAY
     Route: 048
     Dates: start: 20090728, end: 20091222
  2. ZOMETA [Concomitant]
     Dosage: UNK
     Route: 042
     Dates: start: 20090713, end: 20091015
  3. NAUZELIN [Concomitant]
     Dosage: UNK
     Route: 048
  4. SENNA [Concomitant]
     Dosage: UNK
     Route: 048
  5. TAKEPRON [Concomitant]
     Dosage: UNK
     Route: 048
  6. ASTHPHYLLIN [Concomitant]
     Dosage: UNK
     Route: 048
  7. JUZENTAIHOTO [Concomitant]
     Dosage: UNK
     Route: 048

REACTIONS (1)
  - PLEURAL EFFUSION [None]
